FAERS Safety Report 4290633-8 (Version None)
Quarter: 2004Q1

REPORT INFORMATION
  Report Type: 
  Country: None (occurrence: None)
  Receive Date: 20040209
  Receipt Date: 20040123
  Transmission Date: 20041129
  Serious: Yes (Hospitalization)
  Sender: FDA-Public Use
  Company Number: USA-2003-0010909

PATIENT
  Age: 4 Year
  Sex: Male

DRUGS (1)
  1. CEFDITOREN PIVOXIL (SIMILAR TO NDA 21-222)(CEFDITOREN PIVOXIL) UNKNOWN [Suspect]
     Indication: PNEUMONIA
     Dosage: 170 MG, DAILY, ORAL
     Route: 048
     Dates: start: 20031105, end: 20031107

REACTIONS (1)
  - DEPRESSED LEVEL OF CONSCIOUSNESS [None]
